FAERS Safety Report 24283342 (Version 1)
Quarter: 2024Q3

REPORT INFORMATION
  Report Type: Spontaneous
  Country: US (occurrence: None)
  Receive Date: 20240903
  Receipt Date: 20240903
  Transmission Date: 20241016
  Serious: Yes (Death)
  Sender: Public
  Company Number: None

PATIENT
  Age: 46 Year
  Sex: Female
  Weight: 56.25 kg

DRUGS (2)
  1. MIRTAZAPINE [Suspect]
     Active Substance: MIRTAZAPINE
     Indication: Anxiety
     Dosage: 45 TABLETS AT BEDTIME ORAL
     Route: 048
     Dates: start: 20240612, end: 20240624
  2. LEXAPRO [Suspect]
     Active Substance: ESCITALOPRAM OXALATE

REACTIONS (5)
  - Completed suicide [None]
  - Abnormal behaviour [None]
  - Negative thoughts [None]
  - Product label confusion [None]
  - Product complaint [None]

NARRATIVE: CASE EVENT DATE: 20240624
